FAERS Safety Report 8998697 (Version 1)
Quarter: 2013Q1

REPORT INFORMATION
  Report Type: Spontaneous
  Country: FR (occurrence: FR)
  Receive Date: 20130103
  Receipt Date: 20130103
  Transmission Date: 20140127
  Serious: Yes (Other)
  Sender: FDA-Public Use
  Company Number: FR-PFIZER INC-2012332253

PATIENT
  Age: 21 Year
  Sex: Male

DRUGS (4)
  1. VFEND [Suspect]
     Indication: BRONCHOPULMONARY ASPERGILLOSIS
     Dosage: UNK
     Route: 048
     Dates: start: 200401, end: 200403
  2. VFEND [Suspect]
     Dosage: UNK
     Route: 048
     Dates: start: 200602, end: 200703
  3. VFEND [Suspect]
     Dosage: UNK
     Route: 048
     Dates: start: 200710, end: 200712
  4. VFEND [Suspect]
     Dosage: UNK
     Dates: start: 200901

REACTIONS (4)
  - Erythema [Not Recovered/Not Resolved]
  - Photosensitivity reaction [Not Recovered/Not Resolved]
  - Solar dermatitis [Not Recovered/Not Resolved]
  - Lentigo [Not Recovered/Not Resolved]
